FAERS Safety Report 6849578-9 (Version None)
Quarter: 2010Q3

REPORT INFORMATION
  Report Type: 
  Country: None (occurrence: None)
  Receive Date: 20100716
  Receipt Date: 20100707
  Transmission Date: 20110219
  Serious: Yes (Hospitalization)
  Sender: FDA-Public Use
  Company Number: BE-ABBOTT-10P-013-0650680-00

PATIENT
  Age: 54 Year
  Sex: Male
  Weight: 85 kg

DRUGS (6)
  1. CLARITHROMYCIN [Suspect]
     Indication: BRONCHITIS
     Dates: start: 20100526, end: 20100603
  2. CEFUROXIME [Interacting]
     Indication: BRONCHITIS
     Dates: start: 20100526, end: 20100604
  3. SYMBICORT [Concomitant]
     Indication: BRONCHITIS
     Dates: start: 20100526, end: 20100606
  4. MEDROL [Concomitant]
     Indication: BRONCHITIS
     Dosage: 32 MG, 16 MG, 8 MG, 4 MG
     Dates: start: 20100526, end: 20100606
  5. XYZAL [Concomitant]
     Indication: ASTHMA
  6. MONTELUKAST [Concomitant]
     Indication: ASTHMA

REACTIONS (2)
  - DRUG INTERACTION [None]
  - MALAISE [None]
